FAERS Safety Report 25715986 (Version 3)
Quarter: 2025Q4

REPORT INFORMATION
  Report Type: Spontaneous
  Country: US (occurrence: US)
  Receive Date: 20250822
  Receipt Date: 20251006
  Transmission Date: 20260118
  Serious: No
  Sender: JOHNSON AND JOHNSON
  Company Number: US-JNJFOC-20250823665

PATIENT
  Age: 70 Year
  Sex: Female

DRUGS (2)
  1. TREMFYA [Suspect]
     Active Substance: GUSELKUMAB
     Indication: Psoriasis
     Route: 065
     Dates: start: 20250815
  2. TREMFYA [Suspect]
     Active Substance: GUSELKUMAB
     Route: 065

REACTIONS (4)
  - Needle issue [Unknown]
  - Product dose omission issue [Unknown]
  - Device malfunction [Unknown]
  - Injection site pain [Unknown]

NARRATIVE: CASE EVENT DATE: 20250815
